FAERS Safety Report 23753371 (Version 1)
Quarter: 2024Q2

REPORT INFORMATION
  Report Type: Spontaneous
  Country: US (occurrence: None)
  Receive Date: 20240417
  Receipt Date: 20240417
  Transmission Date: 20240716
  Serious: No
  Sender: FDA-Public Use
  Company Number: None

PATIENT
  Age: 82 Year
  Sex: Male

DRUGS (1)
  1. JAKAFI [Suspect]
     Active Substance: RUXOLITINIB
     Dates: start: 20230901

REACTIONS (3)
  - Hospice care [None]
  - Terminal state [None]
  - Therapy cessation [None]

NARRATIVE: CASE EVENT DATE: 20240417
